FAERS Safety Report 7106460-X (Version None)
Quarter: 2010Q4

REPORT INFORMATION
  Report Type: 
  Country: None (occurrence: None)
  Receive Date: 20101116
  Receipt Date: 20101111
  Transmission Date: 20110411
  Serious: Yes (Hospitalization, Other)
  Sender: FDA-Public Use
  Company Number: GR-PFIZER INC-2010146783

PATIENT
  Sex: Female

DRUGS (8)
  1. LORAZEPAM [Suspect]
     Indication: PSYCHOTIC DISORDER
  2. CITALOPRAM [Suspect]
     Indication: PSYCHOTIC DISORDER
  3. MIRTAZAPINE [Suspect]
     Indication: PSYCHOTIC DISORDER
  4. PRAMIPEXOLE [Suspect]
     Indication: PSYCHOTIC DISORDER
  5. LAMOTRIGINE [Suspect]
     Indication: PSYCHOTIC DISORDER
  6. QUETIAPINE [Suspect]
     Indication: PSYCHOTIC DISORDER
  7. TRAZODONE [Suspect]
     Indication: PSYCHOTIC DISORDER
  8. DULOXETINE [Suspect]
     Indication: PSYCHOTIC DISORDER

REACTIONS (5)
  - BLOOD CREATINE PHOSPHOKINASE INCREASED [None]
  - BLOOD LACTATE DEHYDROGENASE INCREASED [None]
  - NEUROLEPTIC MALIGNANT SYNDROME [None]
  - PYREXIA [None]
  - SINUS TACHYCARDIA [None]
